FAERS Safety Report 12177951 (Version 1)
Quarter: 2016Q1

REPORT INFORMATION
  Report Type: Report from Study
  Country: US (occurrence: US)
  Receive Date: 20160314
  Receipt Date: 20160314
  Transmission Date: 20160526
  Serious: Yes (Other)
  Sender: FDA-Public Use
  Company Number: US-ABBVIE-16K-163-1572089-00

PATIENT
  Age: 23 Year
  Sex: Male
  Weight: 83.99 kg

DRUGS (1)
  1. HUMIRA [Suspect]
     Active Substance: ADALIMUMAB
     Indication: CROHN^S DISEASE
     Route: 058
     Dates: start: 20141121, end: 20160120

REACTIONS (2)
  - Hernia [Recovering/Resolving]
  - Proctectomy [Recovering/Resolving]

NARRATIVE: CASE EVENT DATE: 20160224
